FAERS Safety Report 8696872 (Version 2)
Quarter: 2012Q4

REPORT INFORMATION
  Report Type: 
  Country: BR (occurrence: BR)
  Receive Date: 20120801
  Receipt Date: 20120828
  Transmission Date: 20130627
  Serious: Yes (Other)
  Sender: FDA-Public Use
  Company Number: BR-PFIZER INC-2012182372

PATIENT
  Age: 65 Year
  Sex: Male

DRUGS (1)
  1. SUTENT [Suspect]

REACTIONS (2)
  - Drug-induced liver injury [Unknown]
  - Pancytopenia [Unknown]
